FAERS Safety Report 10373685 (Version 1)
Quarter: 2014Q1

REPORT INFORMATION
  Report Type: Spontaneous
  Country: US (occurrence: None)
  Receive Date: 20140306
  Receipt Date: 20140306
  Transmission Date: 20141002
  Serious: Yes (Other)
  Sender: FDA-Public Use
  Company Number: 163-21880-13072365

PATIENT
  Age: 70 Year
  Sex: Female

DRUGS (33)
  1. REVLIMID (LENALIDOMIDE) (25 MILLIGRAM, CAPSULES) [Suspect]
     Indication: PLASMA CELL MYELOMA
     Dosage: 25 MG, 14 IN 21 D, PO
     Route: 048
     Dates: start: 20130611, end: 20130705
  2. VELCADE (BORTEZOMIB) (UNKNOWN) [Suspect]
     Indication: PRODUCT USED FOR UNKNOWN INDICATION
     Dosage: 3 IN 28 D, UNK
     Dates: start: 20130521, end: 20130729
  3. DEXAMETHASONE (TABLETS) [Concomitant]
  4. ZOLEDRONIC ACID [Concomitant]
  5. ACYCLOVIR (TABLETS) [Concomitant]
  6. ADVAIR DISKUS (SERETIDE MITE) (INHALANT) [Concomitant]
  7. ALBUTEROL SULFATE (SALBUTAMOL SULFATE) (SOLUTION) [Concomitant]
  8. ASPIRIN (ACETYLSALICYLIC ACID) (TABLETS) [Concomitant]
  9. BUPROPION HCL (BUPROPION HYDROCHLORIDE) (TABLETS) [Concomitant]
  10. CALCIUM 600 + D3 (CALCIUM + VIT D) (CAPSULES) [Concomitant]
  11. COUMADIN (WARFARIN SODIUM) (TABLETS) [Concomitant]
  12. COZAAR (LOSARTAN POTASSIUM) (TABLETS) [Concomitant]
  13. CYCLOBENZAPRINE (TABLETS) [Concomitant]
  14. DALIRESP (ROFLUMILAST) (TABLETS) [Concomitant]
  15. FISH OIL (CAPSULES) [Concomitant]
  16. KEFLEX (CEFALEXIN MONOHYDRATE) (CAPSULES) [Concomitant]
  17. LEVAQUIN (LEVOFLOXACIN) (TABLETS) [Concomitant]
  18. LOSARTAN (TABLETS) [Concomitant]
  19. NEXIUM (ESOMEPRAZOLE) (CAPSULES) [Concomitant]
  20. ONDANSETRON (TABLETS) [Concomitant]
  21. OXYCODONE (TABLETS) [Concomitant]
  22. QVAR (BECLOMETASONE DIPROPIONATE) (AEROSOL FOR INHALATION) [Concomitant]
  23. RANITIDINE (TABLETS) [Concomitant]
  24. ROPINIROLE (TABLETS) [Concomitant]
  25. SIMVASTATIN (TABLETS) [Concomitant]
  26. SPIRIVA WITH HANIHALER (TIOTROPIUM BROMIDE) (CAPSULES) [Concomitant]
  27. TYLENOL ARTHRITIS (PARACETAMOL) (TABLETS) [Concomitant]
  28. ULCEREASE (CALCIUM CARBONATE) (LIQUID) [Concomitant]
  29. VENTOLIN HFA (SALBUTAMOL SULFATE) (AEROSOL FOR INHALATION) [Concomitant]
  30. WARFARIN (TABLETS) [Concomitant]
  31. ZINC (TABLETS) [Concomitant]
  32. ZOLPIDEM (TABLETS) [Concomitant]
  33. O2 (OXYGEN) [Concomitant]

REACTIONS (5)
  - Gait disturbance [None]
  - Oedema peripheral [None]
  - Burning sensation [None]
  - Pruritus [None]
  - Neuropathy peripheral [None]
